FAERS Safety Report 9016280 (Version 1)
Quarter: 2013Q1

REPORT INFORMATION
  Report Type: Spontaneous
  Country: JP (occurrence: JP)
  Receive Date: 20130116
  Receipt Date: 20130116
  Transmission Date: 20140127
  Serious: Yes (Hospitalization)
  Sender: FDA-Public Use
  Company Number: JP-B.I. PHARMACEUTICALS,INC./RIDGEFIELD-2013-BI-00691NB

PATIENT
  Age: 83 Year
  Sex: Female
  Weight: 38 kg

DRUGS (2)
  1. PRAZAXA [Suspect]
     Indication: ATRIAL FIBRILLATION
     Dosage: 220 MG
     Route: 048
     Dates: start: 201205, end: 20130108
  2. PRAZAXA [Suspect]
     Dosage: 300 MG
     Route: 048
     Dates: start: 20130109

REACTIONS (2)
  - Cerebral infarction [Not Recovered/Not Resolved]
  - Cerebral artery embolism [Not Recovered/Not Resolved]
